FAERS Safety Report 14167157 (Version 1)
Quarter: 2017Q4

REPORT INFORMATION
  Report Type: Spontaneous
  Country: US (occurrence: US)
  Receive Date: 20171108
  Receipt Date: 20171108
  Transmission Date: 20180321
  Serious: Yes (Other)
  Sender: FDA-Public Use
  Company Number: US-SUN PHARMACEUTICAL INDUSTRIES LTD-2017US-154031

PATIENT
  Age: 11 Year
  Sex: Male

DRUGS (1)
  1. DEXAMETHASONE. [Suspect]
     Active Substance: DEXAMETHASONE
     Indication: BIPOLAR DISORDER
     Dosage: 40 MG/M2, DAILY (40 MG/M2/DAY FOR 4 DAYS)
     Route: 065

REACTIONS (2)
  - Affect lability [Recovered/Resolved]
  - Condition aggravated [Recovered/Resolved]
